FAERS Safety Report 20318610 (Version 1)
Quarter: 2022Q1

REPORT INFORMATION
  Report Type: Spontaneous
  Country: US (occurrence: None)
  Receive Date: 20220110
  Receipt Date: 20220110
  Transmission Date: 20220423
  Serious: Yes (Hospitalization, Other)
  Sender: FDA-Public Use
  Company Number: US-ROCHE-2996147

PATIENT
  Age: 45 Year
  Sex: Female
  Weight: 55.842 kg

DRUGS (4)
  1. RITUXAN [Suspect]
     Active Substance: RITUXIMAB
     Indication: Sjogren^s syndrome
     Route: 042
     Dates: start: 20050603, end: 200512
  2. RITUXAN [Suspect]
     Active Substance: RITUXIMAB
     Indication: Non-Hodgkin^s lymphoma
     Dosage: YES
     Route: 042
     Dates: start: 202007
  3. TYVASO [Concomitant]
     Active Substance: TREPROSTINIL
     Indication: Sjogren^s syndrome
  4. RECLAST [Concomitant]
     Active Substance: ZOLEDRONIC ACID

REACTIONS (20)
  - Ill-defined disorder [Not Recovered/Not Resolved]
  - B-lymphocyte abnormalities [Not Recovered/Not Resolved]
  - Heart rate increased [Unknown]
  - Osteoporosis [Unknown]
  - Spinal compression fracture [Unknown]
  - Weight decreased [Recovered/Resolved]
  - Oesophagitis [Recovered/Resolved]
  - Cardiomegaly [Recovered/Resolved]
  - Platelet disorder [Unknown]
  - Paralysis [Recovered/Resolved]
  - Seizure [Recovered/Resolved]
  - Off label use [Unknown]
  - Antibody test negative [Unknown]
  - Pneumonia [Unknown]
  - Pulmonary arterial hypertension [Unknown]
  - Interstitial lung disease [Unknown]
  - Sinusitis [Unknown]
  - Bronchitis [Unknown]
  - Influenza [Unknown]
  - Night sweats [Unknown]

NARRATIVE: CASE EVENT DATE: 20051201
